FAERS Safety Report 6303333-7 (Version None)
Quarter: 2009Q3

REPORT INFORMATION
  Report Type: 
  Country: None (occurrence: None)
  Receive Date: 20090810
  Receipt Date: 20090623
  Transmission Date: 20100115
  Serious: No
  Sender: FDA-Public Use
  Company Number: A0793279A

PATIENT
  Age: 46 Year
  Sex: Female

DRUGS (2)
  1. TREXIMET [Suspect]
     Indication: MIGRAINE
     Route: 048
     Dates: start: 20090501
  2. THYROID MEDICATION [Concomitant]

REACTIONS (2)
  - ADVERSE DRUG REACTION [None]
  - VOMITING [None]
